FAERS Safety Report 25199813 (Version 2)
Quarter: 2025Q3

REPORT INFORMATION
  Report Type: Spontaneous
  Country: US (occurrence: US)
  Receive Date: 20250415
  Receipt Date: 20250716
  Transmission Date: 20251020
  Serious: No
  Sender: FENNEC PHARMACEUTICALS
  Company Number: US-FENNEC PHARMACEUTICALS, INC.-2025FEN00035

PATIENT
  Age: 31 Year
  Sex: Male

DRUGS (13)
  1. PEDMARK [Suspect]
     Active Substance: SODIUM THIOSULFATE
     Indication: Ototoxicity
     Dates: start: 20250218
  2. PEDMARK [Suspect]
     Active Substance: SODIUM THIOSULFATE
     Dates: start: 20250310, end: 20250313
  3. ETOPOSIDE [Concomitant]
     Active Substance: ETOPOSIDE
     Route: 042
  4. BLEOMYCIN [Concomitant]
     Active Substance: BLEOMYCIN SULFATE
     Route: 042
  5. CISPLATIN [Concomitant]
     Active Substance: CISPLATIN
     Route: 042
  6. TYLENOL [Concomitant]
     Active Substance: ACETAMINOPHEN
     Route: 048
  7. BENADRYL [Concomitant]
     Active Substance: DIPHENHYDRAMINE HYDROCHLORIDE
     Route: 048
  8. XANAX [Concomitant]
     Active Substance: ALPRAZOLAM
     Route: 048
  9. ABILIFY [Concomitant]
     Active Substance: ARIPIPRAZOLE
     Dosage: 5 MG EVERY OTHER DAY
     Route: 048
  10. DECADRON [Concomitant]
     Active Substance: DEXAMETHASONE
     Dosage: 4 MG, 1X/DAY WITH A MEAL
     Route: 048
  11. HYDROCODONE BITARTRATE AND ACETAMINOPHEN [Concomitant]
     Active Substance: ACETAMINOPHEN\HYDROCODONE BITARTRATE
     Route: 048
  12. ZOFRAN [Concomitant]
     Active Substance: ONDANSETRON HYDROCHLORIDE
     Route: 048
  13. INDERAL [Concomitant]
     Active Substance: PROPRANOLOL HYDROCHLORIDE
     Route: 048

REACTIONS (10)
  - Sneezing [Recovering/Resolving]
  - Chills [Unknown]
  - Tremor [Recovering/Resolving]
  - Thirst [Recovering/Resolving]
  - Cough [Recovering/Resolving]
  - Hiccups [Recovering/Resolving]
  - Chest discomfort [Recovering/Resolving]
  - Dyspepsia [Recovering/Resolving]
  - Nausea [Recovering/Resolving]
  - Off label use [Unknown]

NARRATIVE: CASE EVENT DATE: 20250218
